FAERS Safety Report 10164060 (Version 2)
Quarter: 2014Q2

REPORT INFORMATION
  Report Type: Spontaneous
  Country: US (occurrence: US)
  Receive Date: 20140510
  Receipt Date: 20140510
  Transmission Date: 20141212
  Serious: No
  Sender: FDA-Public Use
  Company Number: US-BRISTOL-MYERS SQUIBB COMPANY-19880723

PATIENT
  Age: 60 Year
  Sex: Female
  Weight: 99.77 kg

DRUGS (15)
  1. BYETTA PEN DISPOSABLE [Suspect]
     Indication: TYPE 2 DIABETES MELLITUS
     Dosage: OCT2010-NOV2011?JUN2012-ONG...
     Route: 058
     Dates: start: 201010
  2. PREDNISONE [Suspect]
     Dates: start: 20131017, end: 20131101
  3. ALBUTEROL [Concomitant]
  4. CELEBREX [Concomitant]
  5. LOSARTAN POTASSIUM + HCTZ [Concomitant]
  6. METFORMIN [Concomitant]
  7. PRAVASTATIN SODIUM [Concomitant]
  8. SINGULAIR [Concomitant]
  9. SYNTHROID [Concomitant]
  10. GLYBURIDE [Concomitant]
  11. VITAMIN D [Concomitant]
  12. CALCIUM [Concomitant]
  13. MULTIVITAMIN [Concomitant]
  14. VITAMIN B12 [Concomitant]
  15. VITAMIN E [Concomitant]

REACTIONS (2)
  - Blood glucose fluctuation [Unknown]
  - Underdose [Unknown]
